FAERS Safety Report 5896809-8 (Version None)
Quarter: 2008Q3

REPORT INFORMATION
  Report Type: 
  Country: None (occurrence: None)
  Receive Date: 20080924
  Receipt Date: 20080103
  Transmission Date: 20090109
  Serious: Yes (Other)
  Sender: FDA-Public Use
  Company Number: US-ASTRAZENECA-2007UW25834

PATIENT
  Age: 23 Year
  Sex: Female

DRUGS (6)
  1. SEROQUEL [Suspect]
     Indication: FLIGHT OF IDEAS
     Route: 048
     Dates: start: 20070814, end: 20071012
  2. SEROQUEL [Suspect]
     Indication: PARANOIA
     Route: 048
     Dates: start: 20070814, end: 20071012
  3. LANTUS [Concomitant]
  4. NOVOLOG [Concomitant]
  5. NEURONTIN [Concomitant]
     Indication: NEURALGIA
     Route: 048
  6. LEXAPRO [Concomitant]

REACTIONS (4)
  - ABNORMAL BEHAVIOUR [None]
  - CONFUSIONAL STATE [None]
  - ENURESIS [None]
  - GRAND MAL CONVULSION [None]
